FAERS Safety Report 7050565-9 (Version None)
Quarter: 2010Q4

REPORT INFORMATION
  Report Type: 
  Country: None (occurrence: None)
  Receive Date: 20101018
  Receipt Date: 20101014
  Transmission Date: 20110411
  Serious: Yes (Other)
  Sender: FDA-Public Use
  Company Number: AU-WYE-G06812110

PATIENT
  Age: 40 Year
  Sex: Male

DRUGS (1)
  1. PRISTIQ [Suspect]
     Indication: MAJOR DEPRESSION
     Dosage: 50MG ONCE A DAY
     Route: 048
     Dates: start: 20101008, end: 20101009

REACTIONS (4)
  - ANGIOEDEMA [None]
  - INTENTIONAL DRUG MISUSE [None]
  - LIP SWELLING [None]
  - SKIN NECROSIS [None]
